FAERS Safety Report 6786986-9 (Version None)
Quarter: 2010Q2

REPORT INFORMATION
  Report Type: 
  Country: None (occurrence: None)
  Receive Date: 20100623
  Receipt Date: 20100616
  Transmission Date: 20101027
  Serious: Yes (Hospitalization)
  Sender: FDA-Public Use
  Company Number: IT-ABBOTT-10P-083-0640921-00

PATIENT
  Sex: Male

DRUGS (5)
  1. ESILGAN TABLETS [Suspect]
     Indication: INTENTIONAL SELF-INJURY
     Route: 048
     Dates: start: 20100421, end: 20100421
  2. ALPRAZOLAM [Suspect]
     Indication: INTENTIONAL SELF-INJURY
     Route: 048
     Dates: start: 20100421, end: 20100421
  3. COAPROVEL [Concomitant]
     Indication: HYPERTENSION
  4. PROSCAR [Concomitant]
     Indication: DRUG USE FOR UNKNOWN INDICATION
  5. OMNIC [Concomitant]
     Indication: BENIGN PROSTATIC HYPERPLASIA

REACTIONS (4)
  - BRADYCARDIA [None]
  - MULTIPLE DRUG OVERDOSE INTENTIONAL [None]
  - OXYGEN SATURATION DECREASED [None]
  - SOPOR [None]
